FAERS Safety Report 20644344 (Version 1)
Quarter: 2022Q1

REPORT INFORMATION
  Report Type: Spontaneous
  Country: US (occurrence: None)
  Receive Date: 20220326
  Receipt Date: 20220326
  Transmission Date: 20220423
  Serious: Yes (Hospitalization)
  Sender: FDA-Public Use
  Company Number: None

PATIENT
  Sex: Male
  Weight: 45.49 kg

DRUGS (2)
  1. CARBOPLATIN [Suspect]
     Active Substance: CARBOPLATIN
     Dates: end: 20220111
  2. TAXOL [Suspect]
     Active Substance: PACLITAXEL
     Dates: end: 20220111

REACTIONS (16)
  - Hypotension [None]
  - Oxygen saturation decreased [None]
  - Blood lactic acid increased [None]
  - Atrial fibrillation [None]
  - Heart rate increased [None]
  - Lymphocyte count decreased [None]
  - Insomnia [None]
  - Pneumonitis [None]
  - Pneumothorax [None]
  - Atelectasis [None]
  - Delirium [None]
  - Confusional state [None]
  - Agitation [None]
  - Pyrexia [None]
  - Aggression [None]
  - Pleural effusion [None]

NARRATIVE: CASE EVENT DATE: 20220306
